FAERS Safety Report 25955931 (Version 1)
Quarter: 2025Q4

REPORT INFORMATION
  Report Type: Report from Study
  Country: US (occurrence: US)
  Receive Date: 20251024
  Receipt Date: 20251024
  Transmission Date: 20260117
  Serious: Yes (Other)
  Sender: EMD SERONO INC
  Company Number: US-Merck Healthcare KGaA-2025019621

PATIENT
  Age: 65 Year
  Sex: Female

DRUGS (1)
  1. REBIF [Suspect]
     Active Substance: INTERFERON BETA-1A
     Indication: Multiple sclerosis
     Dates: start: 2009

REACTIONS (8)
  - Vulval cancer [Unknown]
  - Skin ulcer [Unknown]
  - Impaired healing [Unknown]
  - Limb asymmetry [Unknown]
  - Stress [Unknown]
  - Illness [Unknown]
  - Bronchitis [Unknown]
  - Multiple sclerosis relapse [Unknown]
